FAERS Safety Report 24630963 (Version 6)
Quarter: 2025Q1

REPORT INFORMATION
  Report Type: Spontaneous
  Country: US (occurrence: US)
  Receive Date: 20241118
  Receipt Date: 20250121
  Transmission Date: 20250409
  Serious: No
  Sender: SANDOZ
  Company Number: US-SANDOZ-SDZ2024US095875

PATIENT
  Age: 52 Year
  Sex: Female

DRUGS (1)
  1. GLATOPA [Suspect]
     Active Substance: GLATIRAMER ACETATE
     Indication: Multiple sclerosis
     Dosage: 40 MG, OTHER
     Route: 058
     Dates: start: 20241112

REACTIONS (8)
  - Influenza like illness [Unknown]
  - Pollakiuria [Unknown]
  - Arthralgia [Unknown]
  - Injection site paraesthesia [Unknown]
  - Brain fog [Unknown]
  - Myalgia [Unknown]
  - Nasopharyngitis [Unknown]
  - Injection site erythema [Recovered/Resolved]
